FAERS Safety Report 14767102 (Version 3)
Quarter: 2019Q1

REPORT INFORMATION
  Report Type: Spontaneous
  Country: GB (occurrence: GB)
  Receive Date: 20180417
  Receipt Date: 20190111
  Transmission Date: 20190417
  Serious: Yes (Other)
  Sender: FDA-Public Use
  Company Number: GB-BIOGEN-2018BI00553424

PATIENT
  Age: 44 Year
  Sex: Female

DRUGS (3)
  1. GILENYA [Suspect]
     Active Substance: FINGOLIMOD HYDROCHLORIDE
     Indication: MULTIPLE SCLEROSIS
     Dosage: UNK, QD
     Route: 048
     Dates: start: 201011, end: 20130520
  2. GILENYA [Suspect]
     Active Substance: FINGOLIMOD HYDROCHLORIDE
     Dosage: UNK, QD
     Route: 048
     Dates: start: 20131114, end: 20150409
  3. TECFIDERA [Suspect]
     Active Substance: DIMETHYL FUMARATE
     Indication: PRODUCT USED FOR UNKNOWN INDICATION
     Route: 065
     Dates: start: 201508, end: 20170309

REACTIONS (18)
  - Eczema [Unknown]
  - Contusion [Unknown]
  - Pain in extremity [Unknown]
  - Lymphocyte count decreased [Recovered/Resolved]
  - Feeling abnormal [Unknown]
  - Sensory disturbance [Unknown]
  - Memory impairment [Unknown]
  - Neuralgia [Unknown]
  - White blood cell count decreased [Recovered/Resolved]
  - Sensory loss [Unknown]
  - Back pain [Unknown]
  - Urinary incontinence [Unknown]
  - Urinary retention [Unknown]
  - Facial pain [Unknown]
  - Pruritus [Unknown]
  - Multiple sclerosis relapse [Unknown]
  - Paraesthesia [Unknown]
  - Hot flush [Unknown]

NARRATIVE: CASE EVENT DATE: 20141028
